FAERS Safety Report 10312832 (Version 1)
Quarter: 2014Q3

REPORT INFORMATION
  Report Type: Spontaneous
  Country: FR (occurrence: FR)
  Receive Date: 20140718
  Receipt Date: 20140718
  Transmission Date: 20150326
  Serious: Yes (Hospitalization)
  Sender: FDA-Public Use
  Company Number: FR-SUN PHARMACEUTICAL INDUSTRIES LTD-2014SUN01558

PATIENT
  Age: 69 Year

DRUGS (1)
  1. GEMCITABINE [Suspect]
     Active Substance: GEMCITABINE\GEMCITABINE HYDROCHLORIDE
     Indication: ADENOCARCINOMA PANCREAS
     Dosage: 1000 MG/M2/WEEK (2ND CYCLE, 3RD INFUSION)
     Route: 065

REACTIONS (4)
  - Myalgia [Recovering/Resolving]
  - Myopathy [Recovering/Resolving]
  - Motor dysfunction [Recovering/Resolving]
  - Erythema [Recovering/Resolving]
